FAERS Safety Report 10148090 (Version 2)
Quarter: 2014Q2

REPORT INFORMATION
  Report Type: Spontaneous
  Country: US (occurrence: US)
  Receive Date: 20140501
  Receipt Date: 20140602
  Transmission Date: 20141212
  Serious: No
  Sender: FDA-Public Use
  Company Number: US-AMGEN-USASP2014027777

PATIENT
  Age: 79 Year
  Sex: Male
  Weight: 77.55 kg

DRUGS (3)
  1. ENBREL [Suspect]
     Indication: PSORIASIS
     Dosage: 50 MG, 2 TIMES/WK
     Route: 058
     Dates: start: 20030107
  2. ENBREL [Suspect]
     Indication: PSORIATIC ARTHROPATHY
  3. ZYRTEC [Concomitant]
     Indication: SEASONAL ALLERGY
     Dosage: 10 MG, UNK
     Route: 048

REACTIONS (5)
  - Rash [Recovered/Resolved]
  - Headache [Not Recovered/Not Resolved]
  - Erythema [Not Recovered/Not Resolved]
  - Pain [Not Recovered/Not Resolved]
  - Eczema [Recovered/Resolved]
